FAERS Safety Report 7487751-X (Version None)
Quarter: 2011Q2

REPORT INFORMATION
  Report Type: 
  Country: None (occurrence: None)
  Receive Date: 20110518
  Receipt Date: 20110513
  Transmission Date: 20111010
  Serious: Yes (Death, Other)
  Sender: FDA-Public Use
  Company Number: PHHY2010JP29535

PATIENT
  Sex: Male

DRUGS (6)
  1. DECADRON [Concomitant]
     Dosage: 1 MG
     Route: 048
     Dates: start: 20070912, end: 20090111
  2. ASPARA-CA [Suspect]
     Dosage: 1200 MG
     Route: 048
     Dates: start: 20071010, end: 20080312
  3. LASIX [Concomitant]
     Dosage: 20 MG
     Route: 048
     Dates: start: 20070912, end: 20071009
  4. WARFARIN SODIUM [Concomitant]
     Dosage: 3 MG
     Route: 048
     Dates: start: 20070912, end: 20081009
  5. UFT [Concomitant]
     Dosage: 400 MG
     Route: 048
     Dates: start: 20070912, end: 20081009
  6. ZOMETA [Suspect]
     Indication: METASTASES TO BONE
     Dosage: 4 MG, EVERY 4 WEEKS
     Route: 042
     Dates: start: 20070918, end: 20080919

REACTIONS (6)
  - DISEASE PROGRESSION [None]
  - POSTRENAL FAILURE [None]
  - HYPOCALCAEMIA [None]
  - DISSEMINATED INTRAVASCULAR COAGULATION [None]
  - METASTASES TO BLADDER [None]
  - NEOPLASM MALIGNANT [None]
